FAERS Safety Report 9997511 (Version 1)
Quarter: 2014Q1

REPORT INFORMATION
  Report Type: Spontaneous
  Country: US (occurrence: US)
  Receive Date: 20140311
  Receipt Date: 20140311
  Transmission Date: 20141002
  Serious: No
  Sender: FDA-Public Use
  Company Number: US-GLAXOSMITHKLINE-A1053011A

PATIENT
  Age: 57 Year
  Sex: Female

DRUGS (2)
  1. NICORETTE CINNAMON SURGE OTC [Suspect]
     Indication: EX-TOBACCO USER
  2. NICORETTE FRUIT CHILL OTC [Suspect]
     Indication: EX-TOBACCO USER

REACTIONS (4)
  - Abdominal pain upper [Recovered/Resolved]
  - Diarrhoea [Unknown]
  - Gastroenteritis viral [Unknown]
  - Diarrhoea [Unknown]
